FAERS Safety Report 5583395-5 (Version None)
Quarter: 2007Q4

REPORT INFORMATION
  Report Type: 
  Country: None (occurrence: None)
  Receive Date: 20071231
  Receipt Date: 20071214
  Transmission Date: 20080405
  Serious: Yes (Other)
  Sender: FDA-Public Use
  Company Number: CIP07000961

PATIENT
  Sex: Female

DRUGS (3)
  1. ACTONEL (RISDRONAE SODIUM) TABLET, 35MG [Suspect]
     Dosage: 35 MG, ONCE WEEKLY, ORAL
     Route: 048
  2. SYNTHROID [Concomitant]
  3. CALCIUM  /00944201/ (COLECALCIFEROL, CALCIUM CARBONATE) [Concomitant]

REACTIONS (22)
  - ANAPHYLACTIC REACTION [None]
  - ANXIETY [None]
  - BONE EROSION [None]
  - BONE LESION [None]
  - CALCINOSIS [None]
  - DISEASE PROGRESSION [None]
  - ECCHYMOSIS [None]
  - EMOTIONAL DISTRESS [None]
  - FACIAL PAIN [None]
  - HYPOAESTHESIA [None]
  - LOSS OF CONSCIOUSNESS [None]
  - MASTICATION DISORDER [None]
  - MOUTH CYST [None]
  - NASAL OEDEMA [None]
  - OSTEONECROSIS [None]
  - PAIN [None]
  - PARANASAL SINUS DISCOMFORT [None]
  - POST PROCEDURAL COMPLICATION [None]
  - RHINALGIA [None]
  - RHINORRHOEA [None]
  - SINUSITIS ASPERGILLUS [None]
  - TOOTHACHE [None]
